FAERS Safety Report 21226070 (Version 2)
Quarter: 2022Q4

REPORT INFORMATION
  Report Type: Spontaneous
  Country: US (occurrence: US)
  Receive Date: 20220818
  Receipt Date: 20221114
  Transmission Date: 20230113
  Serious: No
  Sender: FDA-Public Use
  Company Number: US-HORIZON THERAPEUTICS-HZN-2022-004677

PATIENT

DRUGS (2)
  1. TEPEZZA [Suspect]
     Active Substance: TEPROTUMUMAB-TRBW
     Indication: Product used for unknown indication
     Dosage: 1ST DOSE
     Route: 065
  2. TEPEZZA [Suspect]
     Active Substance: TEPROTUMUMAB-TRBW
     Dosage: COMPLETED THERAPY
     Route: 065

REACTIONS (18)
  - Pain [Unknown]
  - Wound haemorrhage [Unknown]
  - Scratch [Unknown]
  - Erythema [Unknown]
  - Onychomycosis [Unknown]
  - Muscle disorder [Unknown]
  - Dysstasia [Unknown]
  - Contusion [Unknown]
  - Skin disorder [Unknown]
  - Nail growth abnormal [Unknown]
  - Gait disturbance [Unknown]
  - Skin fragility [Unknown]
  - Skin ulcer [Unknown]
  - Impaired quality of life [Unknown]
  - Symptom recurrence [Unknown]
  - Muscle spasms [Unknown]
  - Diplopia [Unknown]
  - Condition aggravated [Unknown]
